FAERS Safety Report 7933026 (Version 2)
Quarter: 2013Q4

REPORT INFORMATION
  Report Type: Spontaneous
  Country: US (occurrence: US)
  Receive Date: 20110506
  Receipt Date: 20131118
  Transmission Date: 20140711
  Serious: Yes (Hospitalization, Other)
  Sender: FDA-Public Use
  Company Number: US-BAYER-2011-037240

PATIENT
  Age: 37 Year
  Sex: Female

DRUGS (4)
  1. YAZ [Suspect]
     Indication: PRODUCT USED FOR UNKNOWN INDICATION
     Dosage: UNK
     Dates: start: 200806
  2. ZANTAC [Concomitant]
  3. PRILOSEC [Concomitant]
  4. STOOL SOFTENER [Concomitant]
     Indication: CONSTIPATION
     Dosage: DAILY
     Route: 048

REACTIONS (4)
  - Gallbladder disorder [None]
  - Cholecystitis chronic [None]
  - Pain [None]
  - Anxiety [None]
